FAERS Safety Report 9049877 (Version 2)
Quarter: 2013Q2

REPORT INFORMATION
  Report Type: Spontaneous
  Country: US (occurrence: US)
  Receive Date: 20130205
  Receipt Date: 20130405
  Transmission Date: 20140414
  Serious: Yes (Other)
  Sender: FDA-Public Use
  Company Number: US-PFIZER INC-2013041083

PATIENT
  Age: 64 Year
  Sex: Female
  Weight: 79.36 kg

DRUGS (1)
  1. PREMARIN [Suspect]
     Indication: HORMONE REPLACEMENT THERAPY
     Dosage: 0.9 MG, 1X/DAY
     Route: 048
     Dates: start: 1984

REACTIONS (4)
  - Hypertension [Unknown]
  - Depression [Unknown]
  - Osteoporosis [Unknown]
  - Bladder disorder [Recovered/Resolved]
